FAERS Safety Report 21300018 (Version 2)
Quarter: 2022Q3

REPORT INFORMATION
  Report Type: Spontaneous
  Country: CA (occurrence: CA)
  Receive Date: 20220906
  Receipt Date: 20220927
  Transmission Date: 20221026
  Serious: No
  Sender: FDA-Public Use
  Company Number: CA-SA-2022SA236820

PATIENT
  Age: 23 Year
  Sex: Female

DRUGS (21)
  1. METRONIDAZOLE [Suspect]
     Active Substance: METRONIDAZOLE
     Indication: Tooth infection
     Route: 065
  2. METRONIDAZOLE [Suspect]
     Active Substance: METRONIDAZOLE
     Indication: Pericoronitis
  3. METRONIDAZOLE [Suspect]
     Active Substance: METRONIDAZOLE
     Indication: Febrile neutropenia
  4. MAGNESIUM [Suspect]
     Active Substance: MAGNESIUM
     Indication: Nervous system disorder prophylaxis
     Route: 042
  5. DAUNORUBICIN [Suspect]
     Active Substance: DAUNORUBICIN
     Indication: Acute myeloid leukaemia
     Dosage: STARTING AT 14 WEEKS AND 6 DAYS.
     Route: 065
  6. MEROPENEM [Suspect]
     Active Substance: MEROPENEM
     Indication: Pericoronitis
     Route: 065
  7. MEROPENEM [Suspect]
     Active Substance: MEROPENEM
     Indication: Febrile neutropenia
  8. MEROPENEM [Suspect]
     Active Substance: MEROPENEM
     Indication: Tooth infection
  9. CEFUROXIME [Suspect]
     Active Substance: CEFUROXIME
     Indication: Pericoronitis
     Route: 065
  10. CEFUROXIME [Suspect]
     Active Substance: CEFUROXIME
     Indication: Febrile neutropenia
  11. CEFUROXIME [Suspect]
     Active Substance: CEFUROXIME
     Indication: Tooth infection
  12. BETAMETHASONE [Suspect]
     Active Substance: BETAMETHASONE
     Indication: Maternal therapy to enhance foetal lung maturity
     Dosage: TWO DOSES
     Route: 030
  13. CYTARABINE [Suspect]
     Active Substance: CYTARABINE
     Indication: Acute myeloid leukaemia
     Dosage: QCY 14 WEEKS AND 6 DAYS
     Route: 065
  14. CYTARABINE [Suspect]
     Active Substance: CYTARABINE
     Dosage: BRIDGING CONSOLIDATIVE THERAPY WITH INTERMEDIATE-DOSE (AT 20 WEEKS GESTATION)
     Route: 042
  15. CYTARABINE [Suspect]
     Active Substance: CYTARABINE
     Dosage: INTERMEDIATE DOSE AT 26 WEEKS
     Route: 065
  16. AMPHOTERICIN B [Suspect]
     Active Substance: AMPHOTERICIN B
     Indication: Antifungal prophylaxis
     Route: 065
  17. DINOPROSTONE [Suspect]
     Active Substance: DINOPROSTONE
     Indication: Induction of cervix ripening
     Dosage: TWO DOSES OF INTRAVAGINAL DINOPROSTONE INSERT OVER 48 HOURS
     Route: 065
  18. DINOPROSTONE [Suspect]
     Active Substance: DINOPROSTONE
     Dosage: TWO DOSES OF INTRAVAGINAL DINOPROSTONE GEL
     Route: 065
  19. OXYTOCIN [Suspect]
     Active Substance: OXYTOCIN
     Indication: Labour induction
     Route: 065
  20. IRON [Suspect]
     Active Substance: IRON
     Indication: Mineral supplementation
     Route: 065
  21. VITAMINS [Suspect]
     Active Substance: VITAMINS
     Indication: Vitamin supplementation
     Route: 065

REACTIONS (1)
  - Maternal exposure during pregnancy [Unknown]
